FAERS Safety Report 7026485-2 (Version None)
Quarter: 2010Q4

REPORT INFORMATION
  Report Type: 
  Country: None (occurrence: None)
  Receive Date: 20101004
  Receipt Date: 20100924
  Transmission Date: 20110411
  Serious: No
  Sender: FDA-Public Use
  Company Number: US-PFIZER INC-2010122360

PATIENT
  Sex: Female
  Weight: 70.748 kg

DRUGS (1)
  1. TOVIAZ [Suspect]
     Indication: POLLAKIURIA
     Dosage: 8 MG, DAILY
     Route: 048
     Dates: start: 20100801

REACTIONS (1)
  - DRUG INEFFECTIVE [None]
